FAERS Safety Report 4816758-3 (Version None)
Quarter: 2005Q4

REPORT INFORMATION
  Report Type: 
  Country: None (occurrence: None)
  Receive Date: 20051101
  Receipt Date: 20050719
  Transmission Date: 20060501
  Serious: No
  Sender: FDA-Public Use
  Company Number: US-GLAXOSMITHKLINE-A0566894A

PATIENT
  Age: 69 Year
  Sex: Female

DRUGS (2)
  1. AMOXIL [Suspect]
     Indication: SKIN INFECTION
     Dosage: 875MG SINGLE DOSE
     Route: 048
  2. NO CONCURRENT MEDICATION [Concomitant]

REACTIONS (6)
  - ASTHENIA [None]
  - DIARRHOEA [None]
  - FLUSHING [None]
  - INJECTION SITE INFECTION [None]
  - INJECTION SITE ULCER [None]
  - VOMITING [None]
